FAERS Safety Report 10179434 (Version 3)
Quarter: 2014Q3

REPORT INFORMATION
  Report Type: Spontaneous
  Country: TR (occurrence: TR)
  Receive Date: 20140519
  Receipt Date: 20140701
  Transmission Date: 20150326
  Serious: Yes (Death, Hospitalization, Other)
  Sender: FDA-Public Use
  Company Number: TR-JNJFOC-20140507882

PATIENT
  Age: 60 Year
  Sex: Female

DRUGS (2)
  1. DOXIUM [Concomitant]
     Route: 065
  2. XARELTO [Suspect]
     Active Substance: RIVAROXABAN
     Indication: PERIPHERAL VENOUS DISEASE
     Route: 048

REACTIONS (7)
  - Myocardial infarction [Fatal]
  - Peripheral swelling [Unknown]
  - Haemorrhage subcutaneous [Unknown]
  - Off label use [Unknown]
  - Anaemia [Unknown]
  - Haemorrhage [Unknown]
  - Wound [Unknown]
